FAERS Safety Report 6158078-3 (Version None)
Quarter: 2009Q2

REPORT INFORMATION
  Report Type: 
  Country: None (occurrence: None)
  Receive Date: 20090414
  Receipt Date: 20090414
  Transmission Date: 20091009
  Serious: Yes (Hospitalization, Disabling)
  Sender: FDA-Public Use
  Company Number: None

PATIENT
  Age: 16 Year
  Sex: Male
  Weight: 61.7 kg

DRUGS (12)
  1. IFOSFAMIDE INJECTION 3G / 60ML TEVA [Suspect]
     Indication: BONE SARCOMA
     Dosage: 3260MG Q 20 H INJ
     Route: 058
     Dates: start: 20090402, end: 20090406
  2. IFOSFAMIDE [Suspect]
     Indication: BONE SARCOMA
     Dosage: 3260MG Q 20 H INJ
     Route: 058
     Dates: start: 20090402, end: 20090406
  3. ACTIVASE [Concomitant]
  4. AMITRIPTLINE HYDROCHLORIDE TAB [Interacting]
  5. DEXAMETHASONE 4MG TAB [Concomitant]
  6. ENOXAPARIN [Concomitant]
  7. ETOPOSIDE [Concomitant]
  8. FENTANYL [Concomitant]
  9. FLUCONAZOLE [Concomitant]
  10. GABAPENTIN [Concomitant]
  11. GRANISETRON HCL [Concomitant]
  12. BACTRIM [Concomitant]

REACTIONS (6)
  - DEPRESSED LEVEL OF CONSCIOUSNESS [None]
  - DYSKINESIA [None]
  - INFUSION RELATED REACTION [None]
  - NEUROTOXICITY [None]
  - SOMNOLENCE [None]
  - TREMOR [None]
